FAERS Safety Report 25277176 (Version 1)
Quarter: 2025Q2

REPORT INFORMATION
  Report Type: Report from Study
  Country: DE (occurrence: DE)
  Receive Date: 20250507
  Receipt Date: 20250507
  Transmission Date: 20250716
  Serious: Yes (Other)
  Sender: ALEXION PHARMACEUTICALS
  Company Number: DE-ASTRAZENECA-202501GLO030108DE

PATIENT
  Age: 75 Year
  Weight: 65 kg

DRUGS (2)
  1. DURVALUMAB [Suspect]
     Active Substance: DURVALUMAB
     Indication: Hepatobiliary cancer
  2. GEMCITABINE [Concomitant]
     Active Substance: GEMCITABINE
     Indication: Hepatocellular carcinoma
     Route: 065

REACTIONS (1)
  - Cholangitis [Not Recovered/Not Resolved]
